FAERS Safety Report 13211098 (Version 1)
Quarter: 2017Q1

REPORT INFORMATION
  Report Type: Spontaneous
  Country: US (occurrence: US)
  Receive Date: 20170210
  Receipt Date: 20170210
  Transmission Date: 20170428
  Serious: Yes (Life-Threatening, Disabling, Other)
  Sender: FDA-Public Use
  Company Number: None

PATIENT
  Age: 50 Year
  Sex: Female
  Weight: 49.5 kg

DRUGS (8)
  1. MULTI VIT. [Concomitant]
  2. CLINDAMYCIN. [Suspect]
     Active Substance: CLINDAMYCIN
     Indication: POST PROCEDURAL INFECTION
     Dosage: ?          QUANTITY:5 TABLET(S);?
     Route: 048
     Dates: start: 20170131, end: 20170205
  3. VITAMIN D [Concomitant]
     Active Substance: CHOLECALCIFEROL
  4. EPIPEN FOR PEANUT ATTACKS [Concomitant]
  5. FOLIC ACID. [Concomitant]
     Active Substance: FOLIC ACID
  6. AMLODIPINE FOR BP [Concomitant]
  7. VITAMIN C [Concomitant]
     Active Substance: ASCORBIC ACID
  8. CLINDAMYCIN. [Suspect]
     Active Substance: CLINDAMYCIN
     Indication: PROPHYLAXIS
     Dosage: ?          QUANTITY:5 TABLET(S);?
     Route: 048
     Dates: start: 20170131, end: 20170205

REACTIONS (4)
  - Emotional distress [None]
  - Clumsiness [None]
  - Dyspnoea [None]
  - Erythema [None]
